FAERS Safety Report 4304722-2 (Version None)
Quarter: 2004Q1

REPORT INFORMATION
  Report Type: 
  Country: None (occurrence: None)
  Receive Date: 20040225
  Receipt Date: 20040225
  Transmission Date: 20041129
  Serious: Yes (Other)
  Sender: FDA-Public Use
  Company Number: None

PATIENT
  Age: 31 Year
  Sex: Male
  Weight: 104.3273 kg

DRUGS (2)
  1. AMBIEN [Suspect]
     Indication: INSOMNIA
     Dosage: 10 MG ONCE AT BE ORAL
     Route: 048
     Dates: start: 20030601, end: 20030830
  2. AMBIEN [Suspect]
     Indication: INSOMNIA
     Dosage: 10 MG ONCE AT BE ORAL
     Route: 048
     Dates: start: 20040118, end: 20040224

REACTIONS (2)
  - AMNESIA [None]
  - PHARMACEUTICAL PRODUCT COMPLAINT [None]
